FAERS Safety Report 5000536-9 (Version None)
Quarter: 2006Q2

REPORT INFORMATION
  Report Type: 
  Country: None (occurrence: None)
  Receive Date: 20060512
  Receipt Date: 20050725
  Transmission Date: 20061013
  Serious: No
  Sender: FDA-Public Use
  Company Number: US-BRISTOL-MYERS SQUIBB COMPANY-13050851

PATIENT
  Age: 68 Year
  Sex: Female

DRUGS (1)
  1. CYTOXAN [Suspect]
     Route: 048

REACTIONS (1)
  - NEUTROPENIA [None]
